FAERS Safety Report 14167019 (Version 1)
Quarter: 2017Q4

REPORT INFORMATION
  Report Type: Spontaneous
  Country: US (occurrence: US)
  Receive Date: 20171107
  Receipt Date: 20171107
  Transmission Date: 20180321
  Serious: Yes (Hospitalization)
  Sender: FDA-Public Use
  Company Number: US-JAZZ-2015-US-000572

PATIENT
  Sex: Male
  Weight: 83.9 kg

DRUGS (5)
  1. AMBIEN [Concomitant]
     Active Substance: ZOLPIDEM TARTRATE
     Indication: SLEEP DISORDER
     Dosage: UNK
     Dates: start: 20150110
  2. XYREM [Suspect]
     Active Substance: SODIUM OXYBATE
     Dosage: 4.0 G, BID
     Route: 048
     Dates: start: 200610, end: 20150110
  3. FLOMAX [Suspect]
     Active Substance: TAMSULOSIN HYDROCHLORIDE
     Indication: PROSTATIC DISORDER
     Dosage: UNK
     Route: 048
  4. XYREM [Suspect]
     Active Substance: SODIUM OXYBATE
     Dosage: 1 G, BID
     Route: 048
     Dates: start: 200610, end: 200610
  5. XYREM [Suspect]
     Active Substance: SODIUM OXYBATE
     Indication: SLEEP DISORDER
     Dosage: 2 G, BID
     Route: 048
     Dates: start: 200411, end: 2005

REACTIONS (7)
  - Incontinence [Not Recovered/Not Resolved]
  - Therapeutic response unexpected [Recovered/Resolved]
  - Cardiac disorder [Recovered/Resolved]
  - Penile burning sensation [Recovering/Resolving]
  - Prostatic disorder [Not Recovered/Not Resolved]
  - Prostatic specific antigen increased [Not Recovered/Not Resolved]
  - Product use in unapproved indication [Unknown]

NARRATIVE: CASE EVENT DATE: 2004
